FAERS Safety Report 5057835-4 (Version None)
Quarter: 2006Q3

REPORT INFORMATION
  Report Type: 
  Country: None (occurrence: None)
  Receive Date: 20060721
  Receipt Date: 20060310
  Transmission Date: 20061208
  Serious: Yes (Other)
  Sender: FDA-Public Use
  Company Number: US-GLAXOSMITHKLINE-A0597134A

PATIENT
  Age: 68 Year
  Sex: Female

DRUGS (6)
  1. AVANDIA [Suspect]
     Dosage: 4MG PER DAY
     Route: 048
     Dates: end: 20060309
  2. METFORMIN [Concomitant]
  3. CAPTOPRIL [Concomitant]
  4. COREG [Concomitant]
  5. THYROID TAB [Concomitant]
  6. IRON [Concomitant]

REACTIONS (1)
  - MACULAR OEDEMA [None]
